FAERS Safety Report 13583974 (Version 2)
Quarter: 2017Q3

REPORT INFORMATION
  Report Type: Spontaneous
  Country: SE (occurrence: SE)
  Receive Date: 20170526
  Receipt Date: 20170705
  Transmission Date: 20171127
  Serious: Yes (Other)
  Sender: FDA-Public Use
  Company Number: SE-BEH-2017080678

PATIENT
  Age: 4 Year
  Sex: Female

DRUGS (1)
  1. HIZENTRA [Suspect]
     Active Substance: HUMAN IMMUNOGLOBULIN G
     Indication: DIGEORGE^S SYNDROME
     Route: 065

REACTIONS (4)
  - Injection site abscess sterile [Unknown]
  - Injection site mass [Unknown]
  - Pyrexia [Unknown]
  - Injection site erythema [Unknown]
